FAERS Safety Report 21286708 (Version 1)
Quarter: 2022Q3

REPORT INFORMATION
  Report Type: Spontaneous
  Country: US (occurrence: None)
  Receive Date: 20220902
  Receipt Date: 20220902
  Transmission Date: 20221027
  Serious: Yes (Hospitalization)
  Sender: FDA-Public Use
  Company Number: None

PATIENT

DRUGS (1)
  1. METHYLNALTREXONE BROMIDE [Suspect]
     Active Substance: METHYLNALTREXONE BROMIDE

REACTIONS (2)
  - Incorrect route of product administration [None]
  - Product design issue [None]
